FAERS Safety Report 8843342 (Version 1)
Quarter: 2012Q4

REPORT INFORMATION
  Report Type: 
  Country: CA (occurrence: CA)
  Receive Date: 20121016
  Receipt Date: 20121016
  Transmission Date: 20130627
  Serious: Yes (Other)
  Sender: FDA-Public Use
  Company Number: CA-WATSON-2012-17671

PATIENT
  Age: 5 Year
  Sex: Female

DRUGS (1)
  1. VALPROATE SODIUM [Suspect]
     Indication: CONVULSION
     Dosage: 250 mg, tid
     Route: 048

REACTIONS (3)
  - Pancreatitis acute [Recovered/Resolved]
  - Diabetes mellitus [Recovered/Resolved]
  - Xanthoma [Recovered/Resolved]
